FAERS Safety Report 4355409-1 (Version None)
Quarter: 2004Q2

REPORT INFORMATION
  Report Type: 
  Country: None (occurrence: None)
  Receive Date: 20040504
  Receipt Date: 20040423
  Transmission Date: 20050107
  Serious: Yes (Hospitalization)
  Sender: FDA-Public Use
  Company Number: FR-JNJFOC-20040405219

PATIENT
  Age: 80 Year
  Sex: Female

DRUGS (9)
  1. TRAMADOL HCL [Suspect]
     Indication: DRUG USE FOR UNKNOWN INDICATION
     Dosage: 50 MG, 4 IN 1 DAY, ORAL
     Route: 048
     Dates: start: 20030101, end: 20040202
  2. MOTILIUM [Suspect]
     Indication: DYSPEPSIA
     Dates: start: 20031219, end: 20040202
  3. CORVASAL (MOLSIDOMINE) TABLETS [Suspect]
     Indication: ANGINA PECTORIS
     Dosage: 3 DOSE(S), 1 IN 1 DAY, ORAL
     Route: 048
     Dates: start: 20000101, end: 20040206
  4. ATHYMIL (MIANSERIN HYDROCHLORIDE) [Suspect]
     Indication: DEPRESSION
     Dosage: 30 MG, 1 IN 1 DAY, ORAL
     Route: 048
     Dates: start: 20031212, end: 20040202
  5. OMEPRAZOLE [Suspect]
     Indication: DIAPHRAGMATIC HERNIA
     Dosage: 20 MG, 1 IN 1 DAY, ORAL
     Route: 048
     Dates: start: 20020101, end: 20040206
  6. ART 50 (DIACEREIN) [Suspect]
     Indication: OSTEOARTHRITIS
     Dosage: 50 MG, 1 IN 1 DAY
     Dates: start: 20030101, end: 20040201
  7. STILNOX (ZOLPIDEM) [Suspect]
     Indication: SLEEP DISORDER
     Dosage: 10 MG, 1 IN 1 DAY, ORAL
     Route: 048
     Dates: start: 20020101, end: 20040206
  8. SECTRAL [Concomitant]
  9. ASPIRIN [Concomitant]

REACTIONS (6)
  - AGRANULOCYTOSIS [None]
  - C-REACTIVE PROTEIN INCREASED [None]
  - DRUG INTERACTION [None]
  - HAEMOGLOBIN DECREASED [None]
  - LUNG DISORDER [None]
  - SEPSIS [None]
